FAERS Safety Report 10092151 (Version 1)
Quarter: 2014Q2

REPORT INFORMATION
  Report Type: Spontaneous
  Country: US (occurrence: US)
  Receive Date: 20140421
  Receipt Date: 20140421
  Transmission Date: 20141212
  Serious: No
  Sender: FDA-Public Use
  Company Number: US-SANOFI-AVENTIS-2013SA027049

PATIENT
  Sex: Female
  Weight: 50 kg

DRUGS (1)
  1. ALLEGRA [Suspect]
     Indication: HYPERSENSITIVITY
     Dates: start: 201303

REACTIONS (3)
  - Malaise [Recovered/Resolved]
  - Decreased appetite [Unknown]
  - Nausea [Unknown]
